FAERS Safety Report 9553998 (Version 1)
Quarter: 2013Q3

REPORT INFORMATION
  Report Type: Spontaneous
  Country: GB (occurrence: GB)
  Receive Date: 20130925
  Receipt Date: 20130925
  Transmission Date: 20140515
  Serious: Yes (Disabling)
  Sender: FDA-Public Use
  Company Number: GB-WATSON-2013-16788

PATIENT
  Age: 83 Year
  Sex: Male

DRUGS (10)
  1. METOCLOPRAMIDE (UNKNOWN) [Suspect]
     Indication: NAUSEA
     Dosage: 30 MG,OVER 24 HOURS
     Route: 058
     Dates: start: 20130829, end: 20130829
  2. DEXAMETHASONE [Concomitant]
     Indication: PRODUCT USED FOR UNKNOWN INDICATION
     Dosage: 2 MG, BID
     Route: 048
     Dates: start: 20130813
  3. TAMSULOSIN [Concomitant]
     Indication: PRODUCT USED FOR UNKNOWN INDICATION
     Dosage: 400 ?G, QAM
     Route: 048
  4. DOMPERIDONE [Concomitant]
     Indication: PRODUCT USED FOR UNKNOWN INDICATION
     Dosage: 10 MG, QID
     Route: 048
  5. PARACETAMOL [Concomitant]
     Indication: PRODUCT USED FOR UNKNOWN INDICATION
     Dosage: 1 G, QID
     Route: 065
  6. BUPRENORPHINE [Concomitant]
     Indication: PRODUCT USED FOR UNKNOWN INDICATION
     Dosage: 10 ?G, Q1H
     Route: 062
  7. LANSOPRAZOLE [Concomitant]
     Indication: PRODUCT USED FOR UNKNOWN INDICATION
     Dosage: 30 MG, QAM
     Route: 048
  8. SENNA                              /00142201/ [Concomitant]
     Indication: PRODUCT USED FOR UNKNOWN INDICATION
     Dosage: 10 ML (7.5MG/5ML), QPM
     Route: 065
     Dates: start: 20130819
  9. CLARITHROMYCIN [Concomitant]
     Indication: PRODUCT USED FOR UNKNOWN INDICATION
     Dosage: 500 MG, BID
     Route: 042
     Dates: start: 20130815, end: 20130817
  10. MORPHINE [Concomitant]
     Indication: PRODUCT USED FOR UNKNOWN INDICATION
     Dosage: 2.5 MG, AS NECESSARY
     Route: 058

REACTIONS (3)
  - Dystonia [Recovered/Resolved with Sequelae]
  - Tachycardia [Recovered/Resolved with Sequelae]
  - Abdominal pain upper [Recovered/Resolved with Sequelae]
